FAERS Safety Report 24146160 (Version 2)
Quarter: 2024Q3

REPORT INFORMATION
  Report Type: Spontaneous
  Country: NL (occurrence: NL)
  Receive Date: 20240729
  Receipt Date: 20240814
  Transmission Date: 20241017
  Serious: Yes (Other)
  Sender: TEVA
  Company Number: None

PATIENT
  Age: 61 Year
  Sex: Female

DRUGS (6)
  1. LACOSAMIDE [Interacting]
     Active Substance: LACOSAMIDE
     Indication: Epilepsy
     Dosage: BRAND NAME NOT SPECIFIED
     Route: 065
  2. ELIQUIS [Concomitant]
     Active Substance: APIXABAN
     Indication: Product used for unknown indication
     Dosage: APIXABAN TABLET FILM COVER
     Route: 065
  3. HYDROXYCHLOROQUINE [Interacting]
     Active Substance: HYDROXYCHLOROQUINE
     Indication: Osteoarthritis
     Dosage: BRAND NAME NOT SPECIFIED 1 TABLET ONCE A DAY
     Route: 065
     Dates: start: 20240614, end: 20240620
  4. BECLOMETHASONE DIPROPIONATE [Concomitant]
     Active Substance: BECLOMETHASONE DIPROPIONATE
     Indication: Product used for unknown indication
     Dosage: AEROSOL 100UG/DO / BRAND NAME NOT SPECIFIED
     Route: 065
  5. ALBUTEROL [Concomitant]
     Active Substance: ALBUTEROL
     Indication: Product used for unknown indication
     Dosage: SALBUTAMOL AEROSOL 100UG/DO / BRAND NAME NOT SPECIFIED
     Route: 065
  6. LOSARTAN [Concomitant]
     Active Substance: LOSARTAN\LOSARTAN POTASSIUM
     Indication: Product used for unknown indication
     Dosage: FO BRAND NAME NOT SPECIFIED ;
     Route: 065

REACTIONS (2)
  - Epilepsy [Recovering/Resolving]
  - Drug interaction [Recovering/Resolving]
